FAERS Safety Report 12366381 (Version 4)
Quarter: 2019Q3

REPORT INFORMATION
  Report Type: Spontaneous
  Country: ES (occurrence: ES)
  Receive Date: 20160513
  Receipt Date: 20190906
  Transmission Date: 20191004
  Serious: Yes (Disabling, Other)
  Sender: FDA-Public Use
  Company Number: PHHY2016ES065195

PATIENT
  Age: 79 Year
  Sex: Female

DRUGS (5)
  1. METHOTREXATE. [Suspect]
     Active Substance: METHOTREXATE
     Indication: TEMPORAL ARTERITIS
     Dosage: UNK
     Route: 065
  2. PREDNISONE. [Suspect]
     Active Substance: PREDNISONE
     Indication: TEMPORAL ARTERITIS
     Dosage: 20 MG, QD
     Route: 065
  3. PREDNISONE. [Suspect]
     Active Substance: PREDNISONE
     Route: 065
  4. PREDNISONE. [Suspect]
     Active Substance: PREDNISONE
     Dosage: 7.5 MG, QD
     Route: 065
  5. TOCILIZUMAB. [Suspect]
     Active Substance: TOCILIZUMAB
     Indication: TEMPORAL ARTERITIS
     Dosage: MAINTENANCE DOSE OF 4 TO 8MG/KG EVERY 4 OR 8 WEEKS
     Route: 042

REACTIONS (8)
  - C-reactive protein increased [Recovered/Resolved]
  - Blindness unilateral [Not Recovered/Not Resolved]
  - Pneumonia cytomegaloviral [Unknown]
  - Optic ischaemic neuropathy [Not Recovered/Not Resolved]
  - Asthenia [Unknown]
  - Pneumonia [Unknown]
  - Polymyalgia rheumatica [Unknown]
  - Sepsis [Unknown]

NARRATIVE: CASE EVENT DATE: 2014
